FAERS Safety Report 7020414-3 (Version None)
Quarter: 2010Q3

REPORT INFORMATION
  Report Type: 
  Country: None (occurrence: None)
  Receive Date: 20100929
  Receipt Date: 20100917
  Transmission Date: 20110219
  Serious: Yes (Other)
  Sender: FDA-Public Use
  Company Number: US-WYE-H17583910

PATIENT
  Sex: Female

DRUGS (2)
  1. PRISTIQ [Suspect]
     Dosage: UNKNOWN
     Route: 048
  2. LYRICA [Suspect]
     Dosage: UNKNOWN
     Dates: start: 20070101

REACTIONS (5)
  - ROAD TRAFFIC ACCIDENT [None]
  - SENSORY LOSS [None]
  - SURGERY [None]
  - UNEVALUABLE EVENT [None]
  - WEIGHT INCREASED [None]
